FAERS Safety Report 9470394 (Version 1)
Quarter: 2013Q3

REPORT INFORMATION
  Report Type: Spontaneous
  Country: DE (occurrence: None)
  Receive Date: 20130815
  Receipt Date: 20130815
  Transmission Date: 20140515
  Serious: No
  Sender: FDA-Public Use
  Company Number: 1308DEU004710

PATIENT
  Age: 2 Year
  Sex: Male
  Weight: 11 kg

DRUGS (1)
  1. KEIMAX [Suspect]
     Indication: SCARLET FEVER
     Dosage: (90MG EQUALS TO 5 ML)
     Route: 048
     Dates: start: 20130806

REACTIONS (2)
  - Overdose [None]
  - No adverse event [None]
